FAERS Safety Report 19887510 (Version 1)
Quarter: 2021Q3

REPORT INFORMATION
  Report Type: Spontaneous
  Country: US (occurrence: US)
  Receive Date: 20210928
  Receipt Date: 20210928
  Transmission Date: 20211014
  Serious: Yes (Other)
  Sender: FDA-Public Use
  Company Number: US-JNJFOC-20210941785

PATIENT
  Age: 43 Year
  Sex: Female

DRUGS (3)
  1. ALBUTEROL. [Concomitant]
     Active Substance: ALBUTEROL
  2. TREMFYA [Suspect]
     Active Substance: GUSELKUMAB
     Indication: PSORIATIC ARTHROPATHY
     Route: 058
     Dates: start: 20210812
  3. OXYCODONE [Concomitant]
     Active Substance: OXYCODONE

REACTIONS (1)
  - Psoriatic arthropathy [Not Recovered/Not Resolved]
